FAERS Safety Report 12726632 (Version 1)
Quarter: 2016Q3

REPORT INFORMATION
  Report Type: Spontaneous
  Country: US (occurrence: US)
  Receive Date: 20160908
  Receipt Date: 20160908
  Transmission Date: 20161109
  Serious: Yes (Hospitalization, Other)
  Sender: FDA-Public Use
  Company Number: US-BAXTER-2016BAX044734

PATIENT
  Sex: Female

DRUGS (2)
  1. DIANEAL LOW CALCIUM PERITONEAL DIALYSIS SOLUTION WITH DEXTROSE [Suspect]
     Active Substance: CALCIUM CHLORIDE\DEXTROSE\MAGNESIUM CHLORIDE\SODIUM CHLORIDE\SODIUM LACTATE
     Indication: PERITONEAL DIALYSIS
     Route: 033
  2. LEVAQUIN [Suspect]
     Active Substance: LEVOFLOXACIN
     Indication: TOE AMPUTATION
     Route: 065
     Dates: start: 20160819

REACTIONS (2)
  - Drug hypersensitivity [Unknown]
  - Localised infection [Unknown]

NARRATIVE: CASE EVENT DATE: 201608
